FAERS Safety Report 6995966-X (Version None)
Quarter: 2010Q3

REPORT INFORMATION
  Report Type: 
  Country: None (occurrence: None)
  Receive Date: 20100918
  Receipt Date: 20081125
  Transmission Date: 20110219
  Serious: No
  Sender: FDA-Public Use
  Company Number: US-WYE-H06962908

PATIENT
  Sex: Male

DRUGS (3)
  1. EFFEXOR XR [Suspect]
     Indication: NEUROPATHY PERIPHERAL
     Route: 048
     Dates: start: 20081103, end: 20081105
  2. EFFEXOR XR [Suspect]
     Route: 048
     Dates: start: 20081107, end: 20081108
  3. EFFEXOR XR [Suspect]
     Route: 048
     Dates: start: 20081109, end: 20081114

REACTIONS (3)
  - ABNORMAL DREAMS [None]
  - DRUG WITHDRAWAL SYNDROME [None]
  - NAUSEA [None]
